FAERS Safety Report 21621838 (Version 1)
Quarter: 2022Q4

REPORT INFORMATION
  Report Type: Spontaneous
  Country: BR (occurrence: None)
  Receive Date: 20221121
  Receipt Date: 20221121
  Transmission Date: 20230112
  Serious: Yes (Other)
  Sender: FDA-Public Use
  Company Number: BR-ROCHE-3221197

PATIENT
  Age: 62 Year
  Sex: Female

DRUGS (14)
  1. ATEZOLIZUMAB [Suspect]
     Active Substance: ATEZOLIZUMAB
     Indication: Small cell lung cancer
     Route: 065
     Dates: start: 20201118, end: 20210201
  2. ATEZOLIZUMAB [Suspect]
     Active Substance: ATEZOLIZUMAB
     Route: 065
     Dates: start: 20210223
  3. CARBOPLATIN [Concomitant]
     Active Substance: CARBOPLATIN
     Indication: Small cell lung cancer
     Dates: start: 20201118, end: 20210201
  4. LEVOTHYROXINE [Concomitant]
     Active Substance: LEVOTHYROXINE
  5. IRINOTECAN [Concomitant]
     Active Substance: IRINOTECAN
     Dosage: DAY 1 AND DAY 8, EVERY 28 DAYS.
  6. CISPLATIN [Concomitant]
     Active Substance: CISPLATIN
     Dosage: DAY 1 AND DAY 8, EVERY 28 DAYS.
  7. PACLITAXEL [Concomitant]
     Active Substance: PACLITAXEL
  8. FILGRASTIM [Concomitant]
     Active Substance: FILGRASTIM
  9. XGEVA [Concomitant]
     Active Substance: DENOSUMAB
  10. TOPOTECAN [Concomitant]
     Active Substance: TOPOTECAN HYDROCHLORIDE
     Dosage: ON DAYS 1 AND 5, EVERY 21 DAYS
  11. GEMZAR [Concomitant]
     Active Substance: GEMCITABINE HYDROCHLORIDE
     Dosage: ON DAYS 1 AND 8, EVERY 8 DAYS
  12. CYCLOPHOSPHAMIDE [Concomitant]
     Active Substance: CYCLOPHOSPHAMIDE
  13. DOXORUBICIN [Concomitant]
     Active Substance: DOXORUBICIN
  14. VINCRISTINE [Concomitant]
     Active Substance: VINCRISTINE

REACTIONS (1)
  - Bronchial obstruction [Unknown]
